FAERS Safety Report 18055745 (Version 1)
Quarter: 2020Q3

REPORT INFORMATION
  Report Type: Spontaneous
  Country: CN (occurrence: CN)
  Receive Date: 20200722
  Receipt Date: 20200722
  Transmission Date: 20201103
  Serious: Yes (Hospitalization, Disabling)
  Sender: FDA-Public Use
  Company Number: CN-GLAXOSMITHKLINE-CN2020APC133340

PATIENT
  Age: 12 Year
  Sex: Female
  Weight: 53 kg

DRUGS (2)
  1. LITHIUM CARBONATE. [Suspect]
     Active Substance: LITHIUM CARBONATE
     Indication: BIPOLAR DISORDER
     Dosage: 0.3 G, QD
     Route: 048
     Dates: start: 20200519, end: 20200615
  2. LAMICTAL [Suspect]
     Active Substance: LAMOTRIGINE
     Indication: BIPOLAR DISORDER
     Dosage: 25 MG, QD
     Route: 048
     Dates: start: 20200519, end: 20200615

REACTIONS (4)
  - Electrocardiogram T wave abnormal [Unknown]
  - Troponin increased [Unknown]
  - Tachycardia [Unknown]
  - Myocardial reperfusion injury [Unknown]

NARRATIVE: CASE EVENT DATE: 20200615
